FAERS Safety Report 24036993 (Version 5)
Quarter: 2025Q1

REPORT INFORMATION
  Report Type: Spontaneous
  Country: US (occurrence: US)
  Receive Date: 20240701
  Receipt Date: 20250103
  Transmission Date: 20250409
  Serious: No
  Sender: BRISTOL-MYERS SQUIBB COMPANY
  Company Number: US-BRISTOL-MYERS SQUIBB COMPANY-2024-104763

PATIENT
  Age: 72 Year
  Sex: Female

DRUGS (1)
  1. REVLIMID [Suspect]
     Active Substance: LENALIDOMIDE
     Indication: Plasma cell myeloma
     Dosage: DOSE: MON, WED, FRI AND SUNDAY
     Route: 048

REACTIONS (5)
  - Joint stiffness [Unknown]
  - Peripheral swelling [Unknown]
  - Skin discolouration [Unknown]
  - Product dose omission issue [Unknown]
  - Off label use [Unknown]
